FAERS Safety Report 9524073 (Version 1)
Quarter: 2013Q3

REPORT INFORMATION
  Report Type: Spontaneous
  Country: ES (occurrence: None)
  Receive Date: 20130912
  Receipt Date: 20130912
  Transmission Date: 20140515
  Serious: Yes (Hospitalization)
  Sender: FDA-Public Use
  Company Number: FK201303889

PATIENT
  Age: 22 Year
  Sex: Male

DRUGS (2)
  1. FAMOTIDINE INJECTION (MANUFACTURER UNKNOWN) (FAMOTIDINE) FAMOTIDINE) [Suspect]
     Indication: PRODUCT USED FOR UNKNOWN INDICATION
  2. DICLOFENAC (DICLOFENAC) [Concomitant]

REACTIONS (1)
  - Anaphylactic reaction [None]
